FAERS Safety Report 20116420 (Version 2)
Quarter: 2021Q4

REPORT INFORMATION
  Report Type: Report from Study
  Country: US (occurrence: US)
  Receive Date: 20211126
  Receipt Date: 20211208
  Transmission Date: 20220303
  Serious: No
  Sender: FDA-Public Use
  Company Number: US-AMGEN-USASP2021185654

PATIENT
  Age: 41 Year
  Sex: Female

DRUGS (2)
  1. CORLANOR [Suspect]
     Active Substance: IVABRADINE HYDROCHLORIDE
     Indication: Heart rate increased
     Dosage: 5 MILLIGRAM, BID
     Route: 065
     Dates: start: 20211022
  2. CORLANOR [Suspect]
     Active Substance: IVABRADINE HYDROCHLORIDE
     Indication: Tachycardia

REACTIONS (4)
  - Heart rate increased [Unknown]
  - Intentional product misuse [Unknown]
  - Off label use [Unknown]
  - Child-Pugh-Turcotte score decreased [Unknown]

NARRATIVE: CASE EVENT DATE: 20210101
